FAERS Safety Report 19931406 (Version 2)
Quarter: 2022Q1

REPORT INFORMATION
  Report Type: Spontaneous
  Country: US (occurrence: US)
  Receive Date: 20211008
  Receipt Date: 20220329
  Transmission Date: 20220423
  Serious: No
  Sender: FDA-Public Use
  Company Number: US-AVEO ONCOLOGY-2021-AVEO-US003514

PATIENT

DRUGS (25)
  1. FOTIVDA [Suspect]
     Active Substance: TIVOZANIB HYDROCHLORIDE
     Indication: Renal cell carcinoma
     Dosage: 0.89 DAILY 2 WEEKS ON AND 1 WEEK OFF
     Route: 048
     Dates: start: 20210830
  2. FOTIVDA [Suspect]
     Active Substance: TIVOZANIB HYDROCHLORIDE
     Dosage: 0.89 MG, DAILY FOR 21 DAYS THEN 7 DAYS OFF
     Route: 048
     Dates: start: 20210813
  3. FOTIVDA [Suspect]
     Active Substance: TIVOZANIB HYDROCHLORIDE
     Dosage: 0.89, 1 CAP PO QD 14D ON/7DAYS OFF AS DIRECTED
     Route: 048
     Dates: start: 20210812
  4. BASAGLAR KWIKPEN [Concomitant]
     Active Substance: INSULIN GLARGINE
  5. BENADRYL ALLERGY [Concomitant]
     Active Substance: DIPHENHYDRAMINE HYDROCHLORIDE
  6. COREG [Concomitant]
     Active Substance: CARVEDILOL
  7. FIASP [Concomitant]
     Active Substance: INSULIN ASPART
  8. OMEPRAZOLE [Concomitant]
     Active Substance: OMEPRAZOLE
  9. VALTREX [Concomitant]
     Active Substance: VALACYCLOVIR HYDROCHLORIDE
  10. ZOCOR [Concomitant]
     Active Substance: SIMVASTATIN
  11. ZYRTEC [Concomitant]
     Active Substance: CETIRIZINE HYDROCHLORIDE
  12. DIETARY SUPPLEMENT [Concomitant]
     Active Substance: DIETARY SUPPLEMENT
  13. XARELTO [Concomitant]
     Active Substance: RIVAROXABAN
  14. ALLEGRA [Concomitant]
     Active Substance: FEXOFENADINE HYDROCHLORIDE
  15. ATOVAQUONE [Concomitant]
     Active Substance: ATOVAQUONE
  16. CLONIDINE HYDROCHLORIDE [Concomitant]
     Active Substance: CLONIDINE HYDROCHLORIDE
  17. ELIQUIS [Concomitant]
     Active Substance: APIXABAN
  18. GUANFACINE HYDROCHLORIDE [Concomitant]
     Active Substance: GUANFACINE HYDROCHLORIDE
  19. LASIX [Concomitant]
     Active Substance: FUROSEMIDE
  20. NASONEX [Concomitant]
     Active Substance: MOMETASONE FUROATE
  21. Relion Novolog [Concomitant]
  22. PREDNISONE [Concomitant]
     Active Substance: PREDNISONE
  23. PROCHLORPERAZINE MALEATE [Concomitant]
     Active Substance: PROCHLORPERAZINE MALEATE
  24. ZOFRAN [Concomitant]
     Active Substance: ONDANSETRON HYDROCHLORIDE
  25. MOLNUPIRAVIR [Concomitant]
     Active Substance: MOLNUPIRAVIR
     Dosage: 800 MG TWICE DAILY FOR 5 DAYS

REACTIONS (7)
  - Fatigue [None]
  - Dysphonia [Unknown]
  - Asthenia [Unknown]
  - Gait disturbance [Unknown]
  - Joint swelling [Unknown]
  - COVID-19 [Recovering/Resolving]
  - Product dose omission issue [Unknown]

NARRATIVE: CASE EVENT DATE: 20220203
